FAERS Safety Report 19212993 (Version 1)
Quarter: 2021Q2

REPORT INFORMATION
  Report Type: Other
  Country: US (occurrence: US)
  Receive Date: 20210504
  Receipt Date: 20210504
  Transmission Date: 20210717
  Serious: No
  Sender: FDA-Public Use
  Company Number: US-ROCHE-2569857

PATIENT
  Age: 75 Year
  Sex: Female

DRUGS (7)
  1. BIMATOPROST. [Concomitant]
     Active Substance: BIMATOPROST
     Indication: GLAUCOMA
     Dosage: TOPICAL
  2. METHOTREXATE. [Concomitant]
     Active Substance: METHOTREXATE
     Indication: CHOROIDAL NEOVASCULARISATION
     Dosage: SIX INTRAVITREAL INJECTIONS
     Route: 050
  3. DORZOLAMIDE HYDROCHLORIDE;TIMOLOL MALEATE [Concomitant]
     Active Substance: DORZOLAMIDE HYDROCHLORIDE\TIMOLOL MALEATE
     Indication: GLAUCOMA
     Dosage: TOPICAL
  4. AVASTIN [Suspect]
     Active Substance: BEVACIZUMAB
     Indication: CHOROIDAL NEOVASCULARISATION
     Dosage: 1.25 MG/0.05 ML FOUR MONTHLY INJECTIONS.
     Route: 050
  5. ADALIMUMAB [Concomitant]
     Active Substance: ADALIMUMAB
     Indication: CHORIORETINITIS
     Dosage: TOPICAL
  6. BRIMONIDINE [Concomitant]
     Active Substance: BRIMONIDINE TARTRATE
     Indication: GLAUCOMA
     Dosage: TOPICAL
  7. MELPHALAN. [Concomitant]
     Active Substance: MELPHALAN
     Indication: CHOROIDAL NEOVASCULARISATION
     Dosage: THREE?MONTHLY INTRAVITREAL INJECTIONS
     Route: 050

REACTIONS (3)
  - Intentional product use issue [Unknown]
  - Off label use [Unknown]
  - No adverse event [Unknown]
